FAERS Safety Report 11700209 (Version 4)
Quarter: 2016Q2

REPORT INFORMATION
  Report Type: Spontaneous
  Country: US (occurrence: US)
  Receive Date: 20151105
  Receipt Date: 20160408
  Transmission Date: 20160815
  Serious: Yes (Hospitalization)
  Sender: FDA-Public Use
  Company Number: US-PFIZER INC-2015348912

PATIENT
  Age: 73 Year
  Sex: Female

DRUGS (3)
  1. HUMALOG MIX [Concomitant]
     Active Substance: INSULIN LISPRO
     Dosage: UNK (INSULIN LISPRO: 75, INSULIN LISPRO PROTAMINE SUSPENSION: 25)
  2. LETROZOLE. [Suspect]
     Active Substance: LETROZOLE
     Indication: BREAST CANCER
     Dosage: 2.5 MG, 1X/DAY
     Dates: start: 20150601
  3. IBRANCE [Suspect]
     Active Substance: PALBOCICLIB
     Indication: BREAST CANCER
     Dosage: 125 MG (1 CAPSULE), DAILY
     Route: 048
     Dates: start: 20150601

REACTIONS (4)
  - Rash [Recovered/Resolved]
  - Alopecia [Not Recovered/Not Resolved]
  - Cystitis [Unknown]
  - Weight increased [Not Recovered/Not Resolved]

NARRATIVE: CASE EVENT DATE: 201601
